FAERS Safety Report 23383245 (Version 2)
Quarter: 2024Q1

REPORT INFORMATION
  Report Type: Spontaneous
  Country: FR (occurrence: FR)
  Receive Date: 20240109
  Receipt Date: 20240112
  Transmission Date: 20240410
  Serious: Yes (Life-Threatening)
  Sender: FDA-Public Use
  Company Number: None

PATIENT
  Age: 68 Year
  Sex: Female
  Weight: 45 kg

DRUGS (21)
  1. PACLITAXEL [Suspect]
     Active Substance: PACLITAXEL
     Indication: Ovarian cancer
     Dosage: 80 MG/M2?INTRAVENOUS?ROA-20045000
     Dates: start: 20170719, end: 20171213
  2. PACLITAXEL [Suspect]
     Active Substance: PACLITAXEL
     Dosage: 175 MG/M2?INTRAVENOUS?ROA-20045000
     Dates: start: 202205, end: 20221020
  3. CARBOPLATIN [Suspect]
     Active Substance: CARBOPLATIN
     Indication: Ovarian cancer
     Dosage: AUC5?5 DOSAGE FORM?INTRAVENOUS?ROA-20045000
     Dates: start: 202205, end: 20221020
  4. CARBOPLATIN [Suspect]
     Active Substance: CARBOPLATIN
     Dosage: AUC5?5 DOSAGE FORM?INTRAVENOUS?ROA-20045000
     Dates: start: 20170719, end: 20171213
  5. OLAPARIB [Suspect]
     Active Substance: OLAPARIB
     Indication: Ovarian cancer
     Dosage: ORAL?ROA-20053000?650 MG
     Dates: start: 20221020, end: 20231117
  6. OLAPARIB [Suspect]
     Active Substance: OLAPARIB
     Indication: Product used for unknown indication
  7. POLYETHYLENE GLYCOLS [Concomitant]
     Active Substance: POLYETHYLENE GLYCOLS
     Dosage: 1 DOSAGE FORM?ORAL?ROA-20053000
  8. POLYETHYLENE GLYCOLS [Concomitant]
     Active Substance: POLYETHYLENE GLYCOLS
     Indication: Product used for unknown indication
     Dosage: 1 DOSAGE FORM?ORAL?ROA-20053000
  9. PRAZEPAM [Concomitant]
     Active Substance: PRAZEPAM
     Dosage: 10 MG?ORAL?ROA-20053000
  10. PRAZEPAM [Concomitant]
     Active Substance: PRAZEPAM
     Indication: Product used for unknown indication
     Dosage: 10 MG?ORAL?ROA-20053000
  11. CHOLECALCIFEROL [Concomitant]
     Active Substance: CHOLECALCIFEROL
     Dosage: 1 DOSAGE FORM?ORAL?ROA-20053000
  12. CHOLECALCIFEROL [Concomitant]
     Active Substance: CHOLECALCIFEROL
     Indication: Product used for unknown indication
     Dosage: 1 DOSAGE FORM?ORAL?ROA-20053000
  13. SPASFON [Concomitant]
     Dosage: 1 DOSAGE FORM?ORAL?ROA-20053000
  14. SPASFON [Concomitant]
     Indication: Product used for unknown indication
     Dosage: 1 DOSAGE FORM?ORAL?ROA-20053000
  15. BEVACIZUMAB [Concomitant]
     Active Substance: BEVACIZUMAB
     Dosage: INTRAVENOUS?ROA-20045000
     Dates: start: 20170726, end: 201811
  16. BEVACIZUMAB [Concomitant]
     Active Substance: BEVACIZUMAB
     Indication: Product used for unknown indication
  17. ATORVASTATIN [Concomitant]
     Active Substance: ATORVASTATIN
     Dosage: 40 MG?ORAL?ROA-20053000
  18. PANTOPRAZOLE [Concomitant]
     Active Substance: PANTOPRAZOLE
     Dosage: 40 MG?ORAL?ROA-20053000
  19. PANTOPRAZOLE [Concomitant]
     Active Substance: PANTOPRAZOLE
     Indication: Product used for unknown indication
     Dosage: 40 MG?ORAL?ROA-20053000
  20. KARDEGIC [Concomitant]
     Active Substance: ASPIRIN DL-LYSINE
     Dosage: 1 DOSAGE FORM?ORAL?ROA-20053000
  21. KARDEGIC [Concomitant]
     Active Substance: ASPIRIN DL-LYSINE
     Indication: Product used for unknown indication
     Dosage: 1 DOSAGE FORM?ORAL?ROA-20053000

REACTIONS (1)
  - Myelodysplastic syndrome [Not Recovered/Not Resolved]

NARRATIVE: CASE EVENT DATE: 20231030
